FAERS Safety Report 16997692 (Version 1)
Quarter: 2019Q4

REPORT INFORMATION
  Report Type: Spontaneous
  Country: IE (occurrence: IE)
  Receive Date: 20191106
  Receipt Date: 20191106
  Transmission Date: 20200122
  Serious: Yes (Other)
  Sender: FDA-Public Use
  Company Number: IE-ROCHE-2348191

PATIENT
  Age: 61 Year
  Sex: Male
  Weight: 95 kg

DRUGS (3)
  1. CARBOPLATIN. [Concomitant]
     Active Substance: CARBOPLATIN
     Indication: SMALL CELL LUNG CANCER
     Dosage: FREQUENCY: Q 21/7
     Route: 042
     Dates: start: 20190619, end: 20190821
  2. ETOPOSIDE. [Concomitant]
     Active Substance: ETOPOSIDE
     Indication: SMALL CELL LUNG CANCER
     Dosage: FREQUENCY:Q 21/7
     Route: 042
     Dates: start: 20190619, end: 20190821
  3. ATEZOLIZUMAB. [Suspect]
     Active Substance: ATEZOLIZUMAB
     Indication: SMALL CELL LUNG CANCER
     Route: 042
     Dates: start: 20190710, end: 20191004

REACTIONS (4)
  - Off label use [Unknown]
  - No adverse event [Unknown]
  - Therapeutic product effect decreased [Unknown]
  - Disease progression [Not Recovered/Not Resolved]
